FAERS Safety Report 14013105 (Version 1)
Quarter: 2017Q3

REPORT INFORMATION
  Report Type: Spontaneous
  Country: ES (occurrence: ES)
  Receive Date: 20170926
  Receipt Date: 20170926
  Transmission Date: 20171128
  Serious: Yes (Other)
  Sender: FDA-Public Use
  Company Number: ES-ELI_LILLY_AND_COMPANY-ES201708011806

PATIENT
  Age: 49 Year
  Sex: Male

DRUGS (2)
  1. TALTZ [Suspect]
     Active Substance: IXEKIZUMAB
     Indication: PSORIASIS
     Dosage: 160 MG, SINGLE
     Route: 058
  2. TALTZ [Suspect]
     Active Substance: IXEKIZUMAB
     Dosage: 80 MG, EVERY TWO WEEKS FOR THREE MONTHS
     Route: 058
     Dates: end: 20170621

REACTIONS (3)
  - Injection site swelling [Unknown]
  - Adenoviral conjunctivitis [Recovering/Resolving]
  - Eyelid disorder [Unknown]

NARRATIVE: CASE EVENT DATE: 20170720
